FAERS Safety Report 6361586-3 (Version None)
Quarter: 2009Q3

REPORT INFORMATION
  Report Type: 
  Country: None (occurrence: None)
  Receive Date: 20090918
  Receipt Date: 20090908
  Transmission Date: 20100115
  Serious: Yes (Other)
  Sender: FDA-Public Use
  Company Number: PHEH2009US10944

PATIENT
  Sex: Male

DRUGS (1)
  1. EXJADE [Suspect]
     Dosage: 1500 MG, DAILY
     Route: 048
     Dates: start: 20090601, end: 20090715

REACTIONS (3)
  - RETINAL VASCULAR DISORDER [None]
  - VASCULAR RUPTURE [None]
  - VISION BLURRED [None]
